FAERS Safety Report 12010278 (Version 2)
Quarter: 2016Q1

REPORT INFORMATION
  Report Type: Spontaneous
  Country: FR (occurrence: FR)
  Receive Date: 20160205
  Receipt Date: 20160229
  Transmission Date: 20160526
  Serious: Yes (Life-Threatening, Hospitalization)
  Sender: FDA-Public Use
  Company Number: FR-ASTRAZENECA-2016SE11211

PATIENT
  Age: 16440 Day
  Sex: Female

DRUGS (6)
  1. XANAX [Suspect]
     Active Substance: ALPRAZOLAM
     Route: 048
     Dates: end: 20151227
  2. LEVOTHYROX [Concomitant]
     Active Substance: LEVOTHYROXINE
  3. XEROQUEL [Suspect]
     Active Substance: QUETIAPINE FUMARATE
     Route: 048
     Dates: end: 20151227
  4. XANAX [Suspect]
     Active Substance: ALPRAZOLAM
     Route: 048
     Dates: start: 20151227
  5. TARDYFERON [Concomitant]
     Active Substance: FERROUS SULFATE\FOLIC ACID
  6. NOCTAMIDE [Suspect]
     Active Substance: LORMETAZEPAM
     Route: 048
     Dates: start: 20151227, end: 20151227

REACTIONS (3)
  - Hypotonia [Recovered/Resolved]
  - Iron deficiency anaemia [Unknown]
  - Somnolence [Recovered/Resolved]

NARRATIVE: CASE EVENT DATE: 20151227
